FAERS Safety Report 22772444 (Version 6)
Quarter: 2023Q4

REPORT INFORMATION
  Report Type: Report from Study
  Country: US (occurrence: US)
  Receive Date: 20230801
  Receipt Date: 20231024
  Transmission Date: 20240110
  Serious: Yes (Other)
  Sender: FDA-Public Use
  Company Number: US-002147023-NVSC2023US168109

PATIENT
  Sex: Female

DRUGS (3)
  1. KISQALI [Suspect]
     Active Substance: RIBOCICLIB
     Indication: Breast cancer metastatic
     Dosage: 600 MG, QD
     Route: 048
  2. KISQALI [Suspect]
     Active Substance: RIBOCICLIB
     Dosage: 200 MG, QD
     Route: 048
  3. KISQALI [Suspect]
     Active Substance: RIBOCICLIB
     Dosage: 200 MG, QD
     Route: 048

REACTIONS (10)
  - Hypersensitivity [Recovered/Resolved]
  - Urticaria [Recovered/Resolved]
  - Weight decreased [Not Recovered/Not Resolved]
  - Rash macular [Recovered/Resolved]
  - Alopecia [Not Recovered/Not Resolved]
  - Pruritus [Recovering/Resolving]
  - Burning sensation [Recovering/Resolving]
  - Blister [Recovered/Resolved]
  - Swollen tongue [Recovered/Resolved]
  - Drug intolerance [Unknown]
